FAERS Safety Report 23951346 (Version 1)
Quarter: 2024Q2

REPORT INFORMATION
  Report Type: Spontaneous
  Country: FR (occurrence: FR)
  Receive Date: 20240607
  Receipt Date: 20240607
  Transmission Date: 20240715
  Serious: Yes (Hospitalization)
  Sender: FDA-Public Use
  Company Number: None

PATIENT
  Age: 83 Year
  Sex: Male

DRUGS (2)
  1. ROPIVACAINE [Suspect]
     Active Substance: ROPIVACAINE
     Indication: Analgesic therapy
     Dosage: 10 MG/H CONTINUOUS AND 6 MG BOLUS?FORM OF ADMIN: 1FP
     Route: 008
     Dates: start: 20240417, end: 20240422
  2. SUFENTANIL CITRATE [Suspect]
     Active Substance: SUFENTANIL CITRATE
     Indication: Analgesic therapy
     Dosage: 0.025 ?G/H CONTINUOUS?FORM OF ADMIN.- 1FP
     Route: 008
     Dates: start: 20240417, end: 20240422

REACTIONS (4)
  - Device programming error [Recovered/Resolved]
  - Hypotension [Recovered/Resolved]
  - Sensory loss [Recovered/Resolved]
  - Somnolence [Recovered/Resolved]

NARRATIVE: CASE EVENT DATE: 20240421
